FAERS Safety Report 7002066-1 (Version None)
Quarter: 2010Q3

REPORT INFORMATION
  Report Type: 
  Country: None (occurrence: None)
  Receive Date: 20100917
  Receipt Date: 20100917
  Transmission Date: 20110219
  Serious: Yes (Disabling)
  Sender: FDA-Public Use
  Company Number: None

PATIENT
  Age: 66 Year
  Sex: Male
  Weight: 83.9154 kg

DRUGS (2)
  1. CIPROFLOXACIN [Suspect]
     Indication: URINARY TRACT INFECTION
     Dosage: 500MG TAB D TWICE DAILY
     Dates: start: 20100813, end: 20100820
  2. NITROFURANTOIN [Suspect]
     Indication: URINARY TRACT INFECTION
     Dosage: 100MG CAP PROC EVERY 12 HOURS
     Dates: start: 20100820, end: 20100827

REACTIONS (2)
  - DIARRHOEA [None]
  - TENDON DISORDER [None]
